FAERS Safety Report 6414950-8 (Version None)
Quarter: 2009Q4

REPORT INFORMATION
  Report Type: 
  Country: None (occurrence: None)
  Receive Date: 20091026
  Receipt Date: 20090327
  Transmission Date: 20100525
  Serious: No
  Sender: FDA-Public Use
  Company Number: US-ABBOTT-09P-163-0561380-00

PATIENT
  Sex: Female

DRUGS (1)
  1. LUPRON DEPOT [Suspect]
     Indication: UTERINE LEIOMYOMA
     Dosage: OFF OF MEDICATION FOR APPROXIMATELY 1 MONTH
     Route: 050

REACTIONS (3)
  - BACK PAIN [None]
  - BONE DENSITY DECREASED [None]
  - MENORRHAGIA [None]
